FAERS Safety Report 4952732-4 (Version None)
Quarter: 2006Q1

REPORT INFORMATION
  Report Type: 
  Country: None (occurrence: None)
  Receive Date: 20060324
  Receipt Date: 20060120
  Transmission Date: 20060701
  Serious: Yes (Life-Threatening, Hospitalization)
  Sender: FDA-Public Use
  Company Number: US-BOEHRINGER INGELHEIM PHARMACEUTICALS, INC.-2006-BP-00799BP

PATIENT
  Sex: Male
  Weight: 60.45 kg

DRUGS (2)
  1. APTIVUS [Suspect]
     Indication: HIV INFECTION
     Route: 048
     Dates: start: 20051018, end: 20051212
  2. ATAZANIVIR/RITONAVIR [Suspect]
     Indication: HIV INFECTION

REACTIONS (3)
  - HEPATITIS C VIRUS [None]
  - HEPATOMEGALY [None]
  - LIVER FUNCTION TEST ABNORMAL [None]
